FAERS Safety Report 8973713 (Version 1)
Quarter: 2012Q4

REPORT INFORMATION
  Report Type: 
  Country: CN (occurrence: CN)
  Receive Date: 20121218
  Receipt Date: 20121218
  Transmission Date: 20130627
  Serious: Yes (Other)
  Sender: FDA-Public Use
  Company Number: PHHY2012CN115759

PATIENT
  Age: 56 Year
  Sex: Male
  Weight: 59 kg

DRUGS (2)
  1. TEGRETOL [Suspect]
     Indication: PETIT MAL EPILEPSY
     Dosage: 0.5 DF, QD
     Route: 048
     Dates: start: 20100227, end: 20100302
  2. METHOTREXATE [Concomitant]
     Indication: RHEUMATOID ARTHRITIS
     Dosage: UNK UKN, UNK
     Dates: start: 20100121

REACTIONS (14)
  - Altered state of consciousness [Recovering/Resolving]
  - Dermatitis exfoliative [Recovering/Resolving]
  - Flushing [Recovering/Resolving]
  - Nasopharyngitis [Recovering/Resolving]
  - Generalised erythema [Recovering/Resolving]
  - Swelling face [Recovering/Resolving]
  - Local swelling [Recovering/Resolving]
  - Pain [Recovering/Resolving]
  - Pruritus [Recovering/Resolving]
  - Rash erythematous [Recovering/Resolving]
  - Ulcer [Recovering/Resolving]
  - Mouth ulceration [Recovering/Resolving]
  - Dyspnoea [Recovering/Resolving]
  - Skin exfoliation [Recovering/Resolving]
